FAERS Safety Report 21818713 (Version 1)
Quarter: 2023Q1

REPORT INFORMATION
  Report Type: Spontaneous
  Country: US (occurrence: None)
  Receive Date: 20230104
  Receipt Date: 20230104
  Transmission Date: 20230418
  Serious: Yes (Hospitalization)
  Sender: FDA-Public Use
  Company Number: None

PATIENT
  Age: 36 Year
  Sex: Female
  Weight: 87.75 kg

DRUGS (13)
  1. RITUXAN [Suspect]
     Active Substance: RITUXIMAB
     Indication: Sjogren^s syndrome
     Dosage: OTHER FREQUENCY : WEEK 0 AND WEEK 2;?
     Route: 042
     Dates: start: 20221230, end: 20221230
  2. RITUXAN [Suspect]
     Active Substance: RITUXIMAB
     Indication: Systemic lupus erythematosus
  3. SYNTHROID [Concomitant]
     Active Substance: LEVOTHYROXINE SODIUM
  4. GABAPENTIN [Concomitant]
     Active Substance: GABAPENTIN
  5. Savella 25mg [Concomitant]
  6. ZOFRAN [Concomitant]
     Active Substance: ONDANSETRON HYDROCHLORIDE
  7. Neupogen 300mcg [Concomitant]
  8. Aquoral Mouth/Throat Solution [Concomitant]
  9. Gammagard 10 grams [Concomitant]
  10. Plaquenil 200mg [Concomitant]
  11. AZATHIOPRINE [Concomitant]
     Active Substance: AZATHIOPRINE
  12. METHOTREXATE [Concomitant]
     Active Substance: METHOTREXATE
  13. FOLIC ACID [Concomitant]
     Active Substance: FOLIC ACID

REACTIONS (1)
  - Infusion related reaction [None]

NARRATIVE: CASE EVENT DATE: 20221230
